FAERS Safety Report 9851750 (Version 1)
Quarter: 2014Q1

REPORT INFORMATION
  Report Type: Spontaneous
  Country: US (occurrence: US)
  Receive Date: 20140129
  Receipt Date: 20140129
  Transmission Date: 20141002
  Serious: Yes (Hospitalization)
  Sender: FDA-Public Use
  Company Number: US-SUN PHARMACEUTICAL INDUSTRIES LTD-2014SUN00090

PATIENT
  Age: 54 Year
  Sex: Male

DRUGS (1)
  1. DOCETAXEL INJECTION [Suspect]
     Indication: LUNG ADENOCARCINOMA
     Dosage: 75 MG/M2, 1 DOSE/3 WEEKS
     Route: 065
     Dates: start: 201207, end: 201210

REACTIONS (2)
  - Alveolitis allergic [Recovered/Resolved]
  - Rash maculo-papular [Recovered/Resolved]
